FAERS Safety Report 8852921 (Version 1)
Quarter: 2012Q4

REPORT INFORMATION
  Report Type: 
  Country: US (occurrence: US)
  Receive Date: 20121022
  Receipt Date: 20121022
  Transmission Date: 20130627
  Serious: Yes (Other)
  Sender: FDA-Public Use
  Company Number: PHHY2012US092230

PATIENT
  Age: 7 Month
  Sex: Female

DRUGS (3)
  1. METHYLPREDNISOLONE [Suspect]
     Indication: KAWASAKI^S DISEASE
     Dosage: 30 mg/kg/ day
     Route: 042
  2. METHYLPREDNISOLONE [Suspect]
     Dosage: 5 mg/kg, daily
     Route: 042
  3. IMMUNOGLOBULIN G HUMAN [Concomitant]
     Indication: KAWASAKI^S DISEASE
     Route: 042

REACTIONS (4)
  - Pneumatosis intestinalis [Unknown]
  - Hypertension [Unknown]
  - Gastrointestinal haemorrhage [Unknown]
  - Drug intolerance [Unknown]
